FAERS Safety Report 23732029 (Version 1)
Quarter: 2024Q2

REPORT INFORMATION
  Report Type: Spontaneous
  Country: US (occurrence: US)
  Receive Date: 20240411
  Receipt Date: 20240411
  Transmission Date: 20240716
  Serious: Yes (Other)
  Sender: FDA-Public Use
  Company Number: US-PFIZER INC-PV202400043507

PATIENT
  Age: 78 Year
  Sex: Female

DRUGS (1)
  1. DOBUTAMINE HYDROCHLORIDE [Suspect]
     Active Substance: DOBUTAMINE HYDROCHLORIDE
     Indication: Acute myocardial infarction
     Dosage: UNK

REACTIONS (2)
  - Left ventricle outflow tract obstruction [Recovering/Resolving]
  - Condition aggravated [Recovering/Resolving]
